FAERS Safety Report 8416420-4 (Version None)
Quarter: 2012Q2

REPORT INFORMATION
  Report Type: 
  Country: None (occurrence: None)
  Receive Date: 20120606
  Receipt Date: 20120523
  Transmission Date: 20120825
  Serious: Yes (Hospitalization)
  Sender: FDA-Public Use
  Company Number: US-VIROPHARMA INCORPORATED-20120523CINRY2991

PATIENT
  Sex: Female
  Weight: 108.96 kg

DRUGS (4)
  1. CINRYZE [Suspect]
     Indication: HEREDITARY ANGIOEDEMA
     Dates: start: 20111222
  2. ERTAPENEM [Suspect]
     Indication: BRONCHITIS
     Dosage: UNKNOWN
     Route: 065
  3. BERINERT [Concomitant]
     Indication: HEREDITARY ANGIOEDEMA
     Dosage: UNKNOWN
     Route: 065
  4. FIRAZYR [Concomitant]
     Indication: HEREDITARY ANGIOEDEMA
     Dosage: UNKNOWN
     Route: 065

REACTIONS (8)
  - CONVULSION [None]
  - BRONCHITIS [None]
  - GASTRIC ULCER [None]
  - DEHYDRATION [None]
  - OFF LABEL USE [None]
  - HEREDITARY ANGIOEDEMA [None]
  - PANCREATITIS [None]
  - ANGIOEDEMA [None]
